FAERS Safety Report 10837877 (Version 1)
Quarter: 2015Q1

REPORT INFORMATION
  Report Type: Spontaneous
  Country: CH (occurrence: None)
  Receive Date: 20150218
  Receipt Date: 20150218
  Transmission Date: 20150721
  Serious: Yes (Hospitalization)
  Sender: FDA-Public Use
  Company Number: 20150081

PATIENT
  Age: 36 Year
  Sex: Female

DRUGS (2)
  1. FERINJECT [Suspect]
     Active Substance: FERRIC CARBOXYMALTOSE
     Indication: IRON DEFICIENCY
     Route: 041
     Dates: start: 20141103, end: 20141103
  2. LEVAXIN (LEVOTHYROXINE SODIUM) [Concomitant]

REACTIONS (2)
  - Anxiety [None]
  - Hypersensitivity [None]

NARRATIVE: CASE EVENT DATE: 20141103
